FAERS Safety Report 9072948 (Version 1)
Quarter: 2013Q1

REPORT INFORMATION
  Report Type: Report from Study
  Country: US (occurrence: US)
  Receive Date: 20130129
  Receipt Date: 20130129
  Transmission Date: 20140127
  Serious: No
  Sender: FDA-Public Use
  Company Number: US-ABBOTT-12P-163-0922795-00

PATIENT
  Age: 47 Year
  Sex: Male

DRUGS (11)
  1. HUMIRA 40 MG/0.8 ML PEN [Suspect]
     Indication: CROHN^S DISEASE
     Dates: start: 20120207
  2. LEXAPRO [Concomitant]
     Indication: DEPRESSION
     Dosage: NIGHTLY
  3. IRON [Concomitant]
     Indication: SUPPLEMENTATION THERAPY
     Dosage: DAILY
  4. PROMETHAZINE [Concomitant]
     Indication: ABDOMINAL PAIN UPPER
  5. HYDROXYZINE [Concomitant]
     Indication: NERVOUSNESS
  6. DEXILANT [Concomitant]
     Indication: PROPHYLAXIS AGAINST GASTROINTESTINAL ULCER
     Dosage: DAILY
  7. PERCOCET [Concomitant]
     Indication: PAIN
     Dosage: 325MG/10MG EVERY 6 TO 8 HOURS
  8. MS CONTIN [Concomitant]
     Indication: PAIN
  9. TRAZODONE [Concomitant]
     Indication: INSOMNIA
     Dosage: AT BEDTIME
  10. TIZANIDINE [Concomitant]
     Indication: MUSCLE SPASMS
  11. GABAPENTIN [Concomitant]
     Indication: PAIN

REACTIONS (9)
  - Eye pruritus [Not Recovered/Not Resolved]
  - Injection site pain [Not Recovered/Not Resolved]
  - Device malfunction [Unknown]
  - Inappropriate schedule of drug administration [Unknown]
  - Injection site pain [Unknown]
  - Pain in extremity [Not Recovered/Not Resolved]
  - Injection site rash [Not Recovered/Not Resolved]
  - Crohn^s disease [Not Recovered/Not Resolved]
  - Diarrhoea [Not Recovered/Not Resolved]
